FAERS Safety Report 8720503 (Version 3)
Quarter: 2012Q4

REPORT INFORMATION
  Report Type: 
  Country: US (occurrence: US)
  Receive Date: 20120813
  Receipt Date: 20120905
  Transmission Date: 20130627
  Serious: No
  Sender: FDA-Public Use
  Company Number: US-PFIZER INC-2012195145

PATIENT
  Age: 54 Year
  Sex: Female
  Weight: 59.86 kg

DRUGS (5)
  1. DILANTIN [Suspect]
     Indication: CONVULSION
     Dosage: 100 mg, UNK
     Route: 048
     Dates: start: 1981
  2. DILANTIN [Suspect]
     Dosage: UNK
     Route: 048
  3. DILANTIN [Suspect]
     Dosage: 230 mg, daily
     Route: 048
     Dates: start: 198107
  4. DILANTIN [Suspect]
     Dosage: 260 mg
     Route: 048
     Dates: start: 201208
  5. DEPAKENE [Concomitant]
     Indication: CONVULSION
     Dosage: 250 mg, 4x/day
     Dates: start: 198107

REACTIONS (5)
  - Allergic sinusitis [Not Recovered/Not Resolved]
  - Poor quality drug administered [Unknown]
  - Capsule physical issue [Unknown]
  - Feeling abnormal [Unknown]
  - Drug level decreased [Unknown]
